FAERS Safety Report 24311162 (Version 1)
Quarter: 2024Q3

REPORT INFORMATION
  Report Type: Spontaneous
  Country: US (occurrence: US)
  Receive Date: 20240912
  Receipt Date: 20240912
  Transmission Date: 20241016
  Serious: No
  Sender: ALVOGEN
  Company Number: US-ALVOGEN-2023092108

PATIENT
  Age: 70 Year
  Sex: Female

DRUGS (1)
  1. CLINDAMYCIN [Suspect]
     Active Substance: CLINDAMYCIN
     Indication: Product used for unknown indication

REACTIONS (3)
  - Pharyngeal swelling [Unknown]
  - Drug hypersensitivity [Unknown]
  - Urticaria [Unknown]
